FAERS Safety Report 8422564-3 (Version None)
Quarter: 2012Q2

REPORT INFORMATION
  Report Type: 
  Country: None (occurrence: None)
  Receive Date: 20120608
  Receipt Date: 20120516
  Transmission Date: 20120825
  Serious: Yes (Other)
  Sender: FDA-Public Use
  Company Number: LA-JNJFOC-20120521501

PATIENT

DRUGS (1)
  1. VERMOX [Suspect]
     Indication: PROPHYLAXIS
     Route: 065
     Dates: start: 20120402

REACTIONS (7)
  - PYREXIA [None]
  - PRURITUS GENERALISED [None]
  - CONJUNCTIVITIS [None]
  - GASTROINTESTINAL DISORDER [None]
  - ANGIOEDEMA [None]
  - HEADACHE [None]
  - DIZZINESS [None]
